FAERS Safety Report 4759912-1 (Version None)
Quarter: 2005Q3

REPORT INFORMATION
  Report Type: 
  Country: None (occurrence: None)
  Receive Date: 20050831
  Receipt Date: 20050831
  Transmission Date: 20060218
  Serious: Yes (Other)
  Sender: FDA-Public Use
  Company Number: None

PATIENT
  Age: 23 Year
  Sex: Female

DRUGS (1)
  1. HYDROMORPHONE 2 MG [Suspect]
     Dosage: 2 MG ONE TIME IV BOLUS
     Route: 040

REACTIONS (4)
  - CARDIO-RESPIRATORY ARREST [None]
  - DEPRESSED LEVEL OF CONSCIOUSNESS [None]
  - HYPOVENTILATION [None]
  - POST PROCEDURAL COMPLICATION [None]
